FAERS Safety Report 25768439 (Version 1)
Quarter: 2025Q3

REPORT INFORMATION
  Report Type: Spontaneous
  Country: US (occurrence: US)
  Receive Date: 20250905
  Receipt Date: 20250905
  Transmission Date: 20251020
  Serious: No
  Sender: DOMPE FARMACEUTICI
  Company Number: US-FARMAPROD-202506-2182

PATIENT
  Sex: Female

DRUGS (6)
  1. OXERVATE [Suspect]
     Active Substance: CENEGERMIN-BKBJ
     Indication: Neurotrophic keratopathy
     Dates: start: 20230711
  2. OXERVATE [Suspect]
     Active Substance: CENEGERMIN-BKBJ
     Dates: start: 20231030
  3. OXERVATE [Suspect]
     Active Substance: CENEGERMIN-BKBJ
     Dates: start: 20250604
  4. RETAINE PM [Concomitant]
     Active Substance: MINERAL OIL\PETROLATUM
  5. SYSTANE PRO PF [Concomitant]
     Active Substance: PROPYLENE GLYCOL
  6. CORTICOTROPIN [Concomitant]
     Active Substance: CORTICOTROPIN

REACTIONS (6)
  - Ocular discomfort [Unknown]
  - Visual impairment [Unknown]
  - Lacrimation increased [Unknown]
  - Photophobia [Unknown]
  - Eye discharge [Unknown]
  - Eye pain [Unknown]
